FAERS Safety Report 16880486 (Version 2)
Quarter: 2019Q4

REPORT INFORMATION
  Report Type: Spontaneous
  Country: PT (occurrence: PT)
  Receive Date: 20191003
  Receipt Date: 20191028
  Transmission Date: 20200122
  Serious: Yes (Other)
  Sender: FDA-Public Use
  Company Number: PT-009507513-1909PRT009041

PATIENT
  Age: 71 Year
  Sex: Female

DRUGS (4)
  1. ROSUVASTATIN. [Suspect]
     Active Substance: ROSUVASTATIN
     Dosage: 10 MILLIGRAM, QD
  2. CARVEDILOL. [Suspect]
     Active Substance: CARVEDILOL
     Dosage: 12.5 MILLIGRAM, QD
  3. LOSARTAN POTASSIUM. [Suspect]
     Active Substance: LOSARTAN POTASSIUM
     Dosage: 50 MILLIGRAM, QD
  4. AAS [Suspect]
     Active Substance: ASPIRIN
     Dosage: 100 MILLIGRAM, QD

REACTIONS (2)
  - Renal cyst [Not Recovered/Not Resolved]
  - Hydronephrosis [Not Recovered/Not Resolved]
